FAERS Safety Report 4553190-4 (Version None)
Quarter: 2005Q1

REPORT INFORMATION
  Report Type: 
  Country: None (occurrence: None)
  Receive Date: 20050112
  Receipt Date: 20050112
  Transmission Date: 20050727
  Serious: Yes (Life-Threatening, Hospitalization)
  Sender: FDA-Public Use
  Company Number: None

PATIENT
  Age: 43 Year
  Sex: Female
  Weight: 68 kg

DRUGS (11)
  1. PHENYTOIN [Suspect]
     Indication: CONVULSION
     Dosage: 30 MG PO BID
     Route: 048
  2. COUMADIN [Concomitant]
  3. FUROSEMIDE [Concomitant]
  4. METOCLOPRAMIDE [Concomitant]
  5. CITALOPRAM [Concomitant]
  6. CITALOPRAM [Concomitant]
  7. OMEPRAZOLE [Concomitant]
  8. COMBIVENT [Concomitant]
  9. FLAGYL [Concomitant]
  10. OLANZAPINE [Concomitant]
  11. METOPROLOL [Concomitant]

REACTIONS (7)
  - BLISTER [None]
  - DRUG LEVEL DECREASED [None]
  - ERYTHEMA [None]
  - EYE PRURITUS [None]
  - LACRIMATION INCREASED [None]
  - PAIN IN EXTREMITY [None]
  - RASH MORBILLIFORM [None]
